FAERS Safety Report 5613689-6 (Version None)
Quarter: 2008Q1

REPORT INFORMATION
  Report Type: 
  Country: None (occurrence: None)
  Receive Date: 20080205
  Receipt Date: 20080122
  Transmission Date: 20080703
  Serious: Yes (Hospitalization)
  Sender: FDA-Public Use
  Company Number: CA-ELI_LILLY_AND_COMPANY-CA200710007573

PATIENT
  Sex: Male

DRUGS (16)
  1. FORTEO [Suspect]
     Indication: OSTEOPOROSIS
     Dosage: 20 UG, DAILY (1/D)
     Route: 058
     Dates: start: 20070613, end: 20070801
  2. FORTEO [Suspect]
     Dosage: 20 UG, DAILY (1/D)
     Route: 058
     Dates: start: 20070901, end: 20071018
  3. FORTEO [Suspect]
     Dosage: 20 UG, DAILY (1/D)
     Route: 058
     Dates: start: 20071101, end: 20071201
  4. TYLENOL /USA/ [Concomitant]
  5. COUMADIN [Concomitant]
  6. FLOMAX [Concomitant]
     Dosage: 0.4 MG, EACH EVENING
     Route: 048
  7. CALCIUM GLUCONATE [Concomitant]
  8. CARBOCAL D [Concomitant]
     Dosage: UNK D/F, 2/D
     Route: 048
     Dates: start: 20071201
  9. FOSAMAX [Concomitant]
     Route: 048
     Dates: end: 20070601
  10. FOSAMAX [Concomitant]
     Dosage: 70 MG, WEEKLY (1/W)
     Route: 048
     Dates: start: 20071201
  11. PANTOLOC                           /01263201/ [Concomitant]
     Dosage: 40 MG, EACH MORNING
     Route: 048
  12. PMS-CLONAZEPAM [Concomitant]
     Dosage: 0.5 MG, 2/D
     Route: 048
  13. APO-METOCLOP [Concomitant]
     Dosage: 10 MG, 4/D
     Route: 048
  14. SEROQUEL [Concomitant]
     Dosage: 75 MG, EACH EVENING
     Route: 048
  15. LYRICA [Concomitant]
     Dosage: 50 MG, 2/D
     Route: 048
  16. BISOPROLOL [Concomitant]
     Dosage: 2.5 MG, EACH MORNING
     Route: 048

REACTIONS (2)
  - ABDOMINAL PAIN [None]
  - DIARRHOEA [None]
